FAERS Safety Report 6505291-9 (Version None)
Quarter: 2009Q4

REPORT INFORMATION
  Report Type: 
  Country: None (occurrence: None)
  Receive Date: 20091218
  Receipt Date: 20091215
  Transmission Date: 20100525
  Serious: Yes (Hospitalization, Disabling)
  Sender: FDA-Public Use
  Company Number: LB-SANOFI-AVENTIS-2009SA008890

PATIENT
  Age: 86 Year
  Sex: Male

DRUGS (1)
  1. ENOXAPARIN SODIUM [Suspect]
     Indication: PROPHYLAXIS
     Route: 058

REACTIONS (2)
  - CAUDA EQUINA SYNDROME [None]
  - SUBDURAL HAEMATOMA [None]
